FAERS Safety Report 13404151 (Version 3)
Quarter: 2017Q2

REPORT INFORMATION
  Report Type: Report from Study
  Country: JP (occurrence: JP)
  Receive Date: 20170405
  Receipt Date: 20170621
  Transmission Date: 20170830
  Serious: Yes (Hospitalization, Other)
  Sender: FDA-Public Use
  Company Number: JP-BAXTER-2017BAX014512

PATIENT
  Age: 70 Year
  Sex: Male

DRUGS (12)
  1. GRANISETRON HYDROCHLORIDE. [Concomitant]
     Active Substance: GRANISETRON HYDROCHLORIDE
     Route: 041
     Dates: start: 20170311, end: 20170311
  2. CEFEPIME [Concomitant]
     Active Substance: CEFEPIME HYDROCHLORIDE
     Route: 065
     Dates: start: 20170315, end: 20170321
  3. LOXOPROFEN SODIUM HYDRATE [Concomitant]
     Active Substance: LOXOPROFEN SODIUM DIHYDRATE
     Indication: CANCER PAIN
     Route: 048
     Dates: start: 20170314
  4. REBAMIPIDE [Concomitant]
     Active Substance: REBAMIPIDE
     Indication: GASTRITIS PROPHYLAXIS
     Route: 048
     Dates: start: 20170314
  5. ENDOXAN 1G [Suspect]
     Active Substance: CYCLOPHOSPHAMIDE
     Dosage: 1100 MG/BODY
     Route: 041
     Dates: start: 20170311, end: 20170311
  6. CEFEPIME [Concomitant]
     Active Substance: CEFEPIME HYDROCHLORIDE
     Indication: INFECTION PROPHYLAXIS
     Route: 041
     Dates: start: 20170314, end: 20170314
  7. GRANISETRON HYDROCHLORIDE. [Concomitant]
     Active Substance: GRANISETRON HYDROCHLORIDE
     Indication: SYNOVIAL SARCOMA
     Route: 041
     Dates: start: 20170310, end: 20170310
  8. ERIBULIN MESILATE [Concomitant]
     Active Substance: ERIBULIN
     Dosage: 2 MG/BODY
     Route: 041
     Dates: start: 20161213
  9. MOHRUS [Concomitant]
     Active Substance: KETOPROFEN
     Indication: CANCER PAIN
     Route: 062
     Dates: start: 20170314
  10. ENDOXAN 1G [Suspect]
     Active Substance: CYCLOPHOSPHAMIDE
     Indication: SYNOVIAL SARCOMA
     Dosage: 1100 MG/BODY
     Route: 041
     Dates: start: 20170310, end: 20170310
  11. ERIBULIN MESILATE [Concomitant]
     Active Substance: ERIBULIN
     Indication: DRUG THERAPY
     Dosage: 2 MG/BODY
     Route: 041
     Dates: start: 20161206
  12. SOLACET F [Concomitant]
     Indication: FLUID REPLACEMENT
     Route: 041
     Dates: start: 20170314, end: 20170321

REACTIONS (8)
  - Atelectasis [Unknown]
  - Metastatic neoplasm [Recovering/Resolving]
  - Metastases to spine [Recovering/Resolving]
  - Cytokine release syndrome [Recovered/Resolved]
  - Disease recurrence [Recovering/Resolving]
  - Interstitial lung disease [Recovering/Resolving]
  - Metastases to bone [Unknown]
  - Pleural effusion [Recovering/Resolving]

NARRATIVE: CASE EVENT DATE: 20170314
